FAERS Safety Report 11810480 (Version 1)
Quarter: 2015Q4

REPORT INFORMATION
  Report Type: Spontaneous
  Country: US (occurrence: None)
  Receive Date: 20151207
  Receipt Date: 20151207
  Transmission Date: 20160305
  Serious: Yes (Other)
  Sender: FDA-Public Use
  Company Number: None

PATIENT
  Age: 51 Year
  Sex: Male
  Weight: 97.52 kg

DRUGS (14)
  1. ULORIC [Concomitant]
     Active Substance: FEBUXOSTAT
  2. VITAMIN D [Concomitant]
     Active Substance: CHOLECALCIFEROL
  3. DILAUDID [Concomitant]
     Active Substance: HYDROMORPHONE HYDROCHLORIDE
  4. ZYRTEC [Concomitant]
     Active Substance: CETIRIZINE HYDROCHLORIDE
  5. FLOMAX [Suspect]
     Active Substance: TAMSULOSIN HYDROCHLORIDE
     Indication: NEPHROLITHIASIS
     Dosage: 1 PILL
     Route: 048
     Dates: start: 20151116, end: 20151129
  6. MYRBETRIQ [Concomitant]
     Active Substance: MIRABEGRON
  7. VITAMIN B COMPLEX [Concomitant]
     Active Substance: CYANOCOBALAMIN\DEXPANTHENOL\NIACINAMIDE\PYRIDOXINE HYDROCHLORIDE\RIBOFLAVIN 5^-PHOSPHATE SODIUM\THIAMINE HYDROCHLORIDE\VITAMIN B COMPLEX
  8. ASPIRIN. [Concomitant]
     Active Substance: ASPIRIN
  9. FISH OIL [Concomitant]
     Active Substance: FISH OIL
  10. METFORMIN [Concomitant]
     Active Substance: METFORMIN HYDROCHLORIDE
  11. NEXIUM [Concomitant]
     Active Substance: ESOMEPRAZOLE MAGNESIUM
  12. CINNAMON. [Concomitant]
     Active Substance: CINNAMON
  13. ANDROGEL [Concomitant]
     Active Substance: TESTOSTERONE
  14. CIPRO [Concomitant]
     Active Substance: CIPROFLOXACIN HYDROCHLORIDE

REACTIONS (4)
  - Tachyphrenia [None]
  - Insomnia [None]
  - Anxiety [None]
  - Heart rate increased [None]

NARRATIVE: CASE EVENT DATE: 20151201
